FAERS Safety Report 6022786 (Version 3)
Quarter: 2020Q3

REPORT INFORMATION
  Report Type: Report from Study
  Country: CA (occurrence: CA)
  Receive Date: 20060411
  Receipt Date: 20071008
  Transmission Date: 20201104
  Serious: Yes (Hospitalization)
  Sender: FDA-Public Use
  Company Number: CA-JNJFOC-20060104600

PATIENT
  Age: 61 Year
  Sex: Male

DRUGS (28)
  1. BUSCOPAN [Concomitant]
     Active Substance: BUTYLSCOPOLAMINE BROMIDE
     Indication: GASTROINTESTINAL PAIN
     Route: 048
  2. TYLENOL EXTRA STRENGTH [Concomitant]
     Route: 048
  3. IMURAN [Concomitant]
     Active Substance: AZATHIOPRINE
     Indication: COLITIS ULCERATIVE
     Route: 048
  4. LASIX [Concomitant]
     Active Substance: FUROSEMIDE
     Indication: OEDEMA PERIPHERAL
     Route: 048
  5. DRISTAN COLD MULTISYMPTOM [Concomitant]
     Active Substance: ACETAMINOPHEN\CHLORPHENIRAMINE MALEATE\PHENYLEPHRINE HYDROCHLORIDE
     Indication: SINUS DISORDER
     Route: 045
  6. PANTOLOC [Concomitant]
     Active Substance: PANTOPRAZOLE SODIUM
     Indication: GASTROOESOPHAGEAL REFLUX DISEASE
     Route: 048
  7. TYLENOL EXTRA STRENGTH [Concomitant]
     Route: 048
  8. BENADRYL [Concomitant]
     Active Substance: DIPHENHYDRAMINE HYDROCHLORIDE
     Route: 048
  9. INFLIXIMAB [Suspect]
     Active Substance: INFLIXIMAB
     Route: 042
  10. NOVO 5?ASA [Concomitant]
     Indication: COLITIS ULCERATIVE
     Route: 048
  11. POLYSPORIN [Concomitant]
     Active Substance: BACITRACIN ZINC\POLYMYXIN B SULFATE
     Indication: RASH
     Route: 061
  12. SOLU?CORTEF [Concomitant]
     Active Substance: HYDROCORTISONE SODIUM SUCCINATE
     Indication: ABDOMINAL PAIN
     Route: 042
  13. TRIMEBUTINE [Concomitant]
     Indication: GASTROINTESTINAL PAIN
     Route: 048
  14. PAXIL [Concomitant]
     Active Substance: PAROXETINE HYDROCHLORIDE
     Indication: DEPRESSION
     Route: 048
  15. PROCTOMYXIM HC [Concomitant]
     Indication: HAEMORRHOIDS
     Route: 061
  16. BENADRYL [Concomitant]
     Active Substance: DIPHENHYDRAMINE HYDROCHLORIDE
     Indication: PREMEDICATION
     Route: 048
  17. PREPARATION H NOS [Concomitant]
     Active Substance: COCOA BUTTER\PETROLATUM\PHENYLEPHRINE HYDROCHLORIDE\PHENYLEPHRINE HYDROCHLORIDE OR MINERAL OIL
     Indication: HAEMORRHOIDS
     Route: 054
  18. GRAVOL [Concomitant]
     Active Substance: DIMENHYDRINATE
     Indication: NAUSEA
     Route: 042
  19. ATIVAN [Concomitant]
     Active Substance: LORAZEPAM
     Indication: SEDATION
     Route: 060
  20. OXYCOCET [Concomitant]
     Active Substance: ACETAMINOPHEN\OXYCODONE HYDROCHLORIDE
     Indication: ARTHRITIS
     Route: 048
  21. NAPROXEN. [Concomitant]
     Active Substance: NAPROXEN
     Indication: ARTHRITIS
     Route: 048
  22. INFLIXIMAB [Suspect]
     Active Substance: INFLIXIMAB
     Indication: COLITIS ULCERATIVE
     Route: 042
  23. BECLOMETHASONE DIPROPIONATE [Concomitant]
     Active Substance: BECLOMETHASONE DIPROPIONATE
     Indication: ASTHMA
     Route: 055
  24. GRAVOL [Concomitant]
     Active Substance: DIMENHYDRINATE
     Indication: VOMITING
     Route: 042
  25. TYLENOL EXTRA STRENGTH [Concomitant]
     Indication: PREMEDICATION
     Route: 048
  26. METAMUCIL THERAPY FOR REGULARITY [Concomitant]
     Active Substance: PSYLLIUM HUSK
     Indication: MEDICAL DIET
     Route: 048
  27. PROCTOFOAM [Concomitant]
     Indication: PROCTALGIA
     Route: 054
  28. BENADRYL [Concomitant]
     Active Substance: DIPHENHYDRAMINE HYDROCHLORIDE
     Route: 048

REACTIONS (14)
  - Cardiac failure congestive [Recovered/Resolved]
  - Pneumonia [Recovered/Resolved]
  - Aortic arteriosclerosis [None]
  - Tricuspid valve incompetence [None]
  - Ventricular dysfunction [None]
  - Mitral valve incompetence [None]
  - Left atrial dilatation [None]
  - Atrial fibrillation [Recovered/Resolved]
  - Pulmonary hypertension [None]
  - Oedema peripheral [None]
  - Ventricular extrasystoles [None]
  - Congestive cardiomyopathy [None]
  - Skin hyperpigmentation [None]
  - Right atrial dilatation [None]

NARRATIVE: CASE EVENT DATE: 20060103
